FAERS Safety Report 7702285-2 (Version None)
Quarter: 2011Q3

REPORT INFORMATION
  Report Type: 
  Country: None (occurrence: None)
  Receive Date: 20110822
  Receipt Date: 20110812
  Transmission Date: 20111222
  Serious: Yes (Other)
  Sender: FDA-Public Use
  Company Number: US-BAYER-200827427NA

PATIENT
  Age: 59 Year
  Sex: Female
  Weight: 109 kg

DRUGS (54)
  1. OPTIMARK [Suspect]
     Indication: NUCLEAR MAGNETIC RESONANCE IMAGING
  2. ZEMPLAR [Concomitant]
  3. PRILOSEC [Concomitant]
  4. HUMALOG [Concomitant]
  5. ZOCOR [Concomitant]
  6. TRICOR [Concomitant]
  7. EPOGEN [Concomitant]
  8. COLACE [Concomitant]
  9. HOMATROPINE [Concomitant]
  10. IBUPROFEN [Concomitant]
  11. OMNISCAN [Suspect]
     Indication: ANGIOGRAM
  12. IRON [IRON] [Concomitant]
  13. RENAGEL [Concomitant]
  14. PLAVIX [Concomitant]
  15. DIATX [Concomitant]
  16. MAGNEVIST [Suspect]
  17. SENSIPAR [Concomitant]
  18. PHOSLO [Concomitant]
  19. TEMAZEPAM [Concomitant]
  20. FLONASE [Concomitant]
  21. SOLIVITO N [VIT C,VIT H,B12,B9,B3,PANTOTHENIC AC,B6,B2,B1 HCL] [Concomitant]
  22. GADOLINIUM IN UNSPECIFIED DRUG [Suspect]
     Dates: start: 19980706, end: 19980706
  23. EVISTA [Concomitant]
  24. CELLCEPT [Concomitant]
     Indication: PROPHYLAXIS AGAINST TRANSPLANT REJECTION
  25. PREDNISONE [Concomitant]
  26. PROGRAF [Concomitant]
  27. PARICALCITOL [Concomitant]
  28. CILOSTAZOL [Concomitant]
  29. ASPIRIN [Concomitant]
  30. VISIPAQUE [Concomitant]
     Indication: AORTOGRAM
     Dates: start: 20050616, end: 20050616
  31. CELEBREX [Concomitant]
  32. EVISTA [Concomitant]
  33. ZOLOFT [Concomitant]
  34. PROAMATINE [Concomitant]
  35. LORATADINE [Concomitant]
  36. OMNISCAN [Suspect]
     Indication: NUCLEAR MAGNETIC RESONANCE IMAGING
  37. PROHANCE [Suspect]
     Indication: NUCLEAR MAGNETIC RESONANCE IMAGING
  38. MIACALCIN [Concomitant]
  39. PERCOCET [Concomitant]
  40. MAGNEVIST [Suspect]
     Indication: NUCLEAR MAGNETIC RESONANCE IMAGING
     Dates: start: 19980824, end: 19980824
  41. MULTIHANCE [Suspect]
     Indication: NUCLEAR MAGNETIC RESONANCE IMAGING
  42. GADOLINIUM IN UNSPECIFIED DRUG [Suspect]
     Dosage: UNK
     Dates: start: 20070801, end: 20070801
  43. NEPHROCAPS [Concomitant]
  44. MAGNEVIST [Suspect]
     Indication: ANGIOGRAM
     Dosage: UNK
     Dates: start: 20020820, end: 20020820
  45. OPTIMARK [Suspect]
     Indication: ANGIOGRAM
  46. MULTIHANCE [Suspect]
     Indication: NUCLEAR MAGNETIC RESONANCE IMAGING ABDOMINAL
     Route: 042
     Dates: start: 20050707, end: 20050707
  47. PROHANCE [Suspect]
     Indication: ANGIOGRAM
  48. EPOGEN [Concomitant]
  49. INSULIN [Concomitant]
  50. LEVOTHYROXINE SODIUM [Concomitant]
  51. SYNTHROID [Concomitant]
  52. TIMOLOL [Concomitant]
  53. LIPITOR [Concomitant]
  54. RESTORIL [Concomitant]

REACTIONS (15)
  - MUSCLE TIGHTNESS [None]
  - FIBROSIS [None]
  - QUALITY OF LIFE DECREASED [None]
  - MUSCULOSKELETAL STIFFNESS [None]
  - NEPHROGENIC SYSTEMIC FIBROSIS [None]
  - JOINT RANGE OF MOTION DECREASED [None]
  - ANXIETY [None]
  - OEDEMA PERIPHERAL [None]
  - MOBILITY DECREASED [None]
  - PAIN [None]
  - EMOTIONAL DISTRESS [None]
  - SKIN DISCOLOURATION [None]
  - SKIN TIGHTNESS [None]
  - GRIEF REACTION [None]
  - ASTHENIA [None]
